FAERS Safety Report 8506572-X (Version None)
Quarter: 2012Q3

REPORT INFORMATION
  Report Type: 
  Country: None (occurrence: None)
  Receive Date: 20120705
  Receipt Date: 20120705
  Transmission Date: 20120928
  Serious: Yes (Other)
  Sender: FDA-Public Use
  Company Number: None

PATIENT
  Sex: Male
  Weight: 134.7183 kg

DRUGS (1)
  1. KLONOPIN [Suspect]
     Dosage: 0.5MG PO BID

REACTIONS (1)
  - TREMOR [None]
